FAERS Safety Report 14873823 (Version 1)
Quarter: 2018Q2

REPORT INFORMATION
  Report Type: Spontaneous
  Country: US (occurrence: US)
  Receive Date: 20180424
  Receipt Date: 20180424
  Transmission Date: 20180711
  Serious: Yes (Hospitalization, Other)
  Sender: FDA-Public Use
  Company Number: None

PATIENT
  Sex: Male

DRUGS (7)
  1. BUPROPION. [Concomitant]
     Active Substance: BUPROPION
  2. ORENCIA [Suspect]
     Active Substance: ABATACEPT
     Indication: RHEUMATOID ARTHRITIS
     Route: 058
     Dates: start: 20160517
  3. ASPIRIN CLOPIDORGREL [Concomitant]
  4. LOPRESSOR [Concomitant]
     Active Substance: METOPROLOL TARTRATE
  5. FOLIC ACID. [Concomitant]
     Active Substance: FOLIC ACID
  6. PRINIVIL [Concomitant]
     Active Substance: LISINOPRIL
  7. METHOTREXATE. [Concomitant]
     Active Substance: METHOTREXATE

REACTIONS (2)
  - Therapy cessation [None]
  - Myocardial infarction [None]
